FAERS Safety Report 17279614 (Version 1)
Quarter: 2020Q1

REPORT INFORMATION
  Report Type: Spontaneous
  Country: JP (occurrence: JP)
  Receive Date: 20200116
  Receipt Date: 20200116
  Transmission Date: 20200409
  Serious: Yes (Other)
  Sender: FDA-Public Use
  Company Number: JP-CELGENEUS-JPN-20191101448

PATIENT
  Age: 8 Decade
  Sex: Male

DRUGS (5)
  1. ABRAXANE [Suspect]
     Active Substance: PACLITAXEL
     Indication: METASTASES TO LYMPH NODES
  2. RAMUCIRUMAB [Concomitant]
     Active Substance: RAMUCIRUMAB
     Indication: PRODUCT USED FOR UNKNOWN INDICATION
     Dosage: 450 MILLIGRAM
     Route: 065
  3. ABRAXANE [Suspect]
     Active Substance: PACLITAXEL
     Indication: ADENOCARCINOMA GASTRIC
     Dosage: 250 MILLIGRAM
     Route: 065
     Dates: start: 201311, end: 201609
  4. ABRAXANE [Suspect]
     Active Substance: PACLITAXEL
     Indication: METASTASES TO LYMPH NODES
     Dosage: 230 MILLIGRAM
     Route: 065
     Dates: start: 201402, end: 201708
  5. TS-1 [Suspect]
     Active Substance: GIMERACIL\OTERACIL\TEGAFUR
     Indication: GASTRIC CANCER
     Dosage: 100 MILLIGRAM
     Route: 048
     Dates: start: 201210

REACTIONS (3)
  - Haematotoxicity [Unknown]
  - Neutropenia [Unknown]
  - Peripheral sensory neuropathy [Unknown]
